FAERS Safety Report 5154752-6 (Version None)
Quarter: 2006Q4

REPORT INFORMATION
  Report Type: 
  Country: None (occurrence: None)
  Receive Date: 20061121
  Receipt Date: 20061114
  Transmission Date: 20070319
  Serious: Yes (Hospitalization, Other)
  Sender: FDA-Public Use
  Company Number: US-JNJFOC-20060806159

PATIENT
  Sex: Male
  Weight: 69.4 kg

DRUGS (9)
  1. REMICADE [Suspect]
  2. REMICADE [Suspect]
  3. REMICADE [Suspect]
     Indication: RHEUMATOID ARTHRITIS
     Dosage: TWO INFUSIONS/UNSPECIFIED DOSE/UNKNOWN DATES
  4. FOLIC ACID [Concomitant]
  5. PREDNISONE TAB [Concomitant]
     Indication: RHEUMATOID ARTHRITIS
  6. FOSAMAX [Concomitant]
     Indication: OSTEOPOROSIS
  7. OXYCODONE HCL [Concomitant]
     Indication: PAIN
     Dosage: DOSE: 10/325
  8. OXYCONTIN [Concomitant]
     Indication: PAIN
  9. METHOTREXATE [Concomitant]
     Indication: RHEUMATOID ARTHRITIS

REACTIONS (3)
  - DYSPHONIA [None]
  - PNEUMONIA [None]
  - WEIGHT DECREASED [None]
